FAERS Safety Report 9250737 (Version 1)
Quarter: 2013Q1

REPORT INFORMATION
  Report Type: Spontaneous
  Country: US (occurrence: None)
  Receive Date: 20130305
  Receipt Date: 20130305
  Transmission Date: 20140127
  Serious: Yes (Other)
  Sender: FDA-Public Use
  Company Number: 163-21880-12071145

PATIENT
  Age: 69 Year
  Sex: Male
  Weight: 82.56 kg

DRUGS (6)
  1. REVLIMID [Suspect]
     Indication: PLASMA CELL MYELOMA
     Dosage: 25MG, 21 IN 28 D, PO
     Route: 048
     Dates: start: 201004, end: 20120605
  2. VITAMINS (VITAMINS) [Concomitant]
  3. COREG (CARVEDILOL) [Concomitant]
  4. LASIX (FUROSEMIDE) [Concomitant]
  5. POTASSIUM (POTASSIUM) [Concomitant]
  6. ZOMETA (ZOLEDRONIC ACID) [Concomitant]

REACTIONS (7)
  - Weight decreased [None]
  - Decreased appetite [None]
  - Diarrhoea [None]
  - Asthenia [None]
  - Dehydration [None]
  - Depression [None]
  - Dyspnoea [None]
